FAERS Safety Report 18886436 (Version 1)
Quarter: 2021Q1

REPORT INFORMATION
  Report Type: Report from Study
  Country: CA (occurrence: CA)
  Receive Date: 20210212
  Receipt Date: 20210212
  Transmission Date: 20210420
  Serious: Yes (Hospitalization)
  Sender: FDA-Public Use
  Company Number: CA-VERTEX PHARMACEUTICALS-2021-002321

PATIENT
  Sex: Male

DRUGS (1)
  1. ELEXACAFTOR/TEZACAFTOR/IVACAFTOR AND IVACAFTOR [Suspect]
     Active Substance: ELEXACAFTOR\IVACAFTOR\TEZACAFTOR
     Indication: CYSTIC FIBROSIS
     Dosage: 2 TABS AM AND 1 TAB PM
     Route: 048
     Dates: start: 20200425

REACTIONS (1)
  - Empyema [Not Recovered/Not Resolved]

NARRATIVE: CASE EVENT DATE: 20210129
